FAERS Safety Report 7534482-3 (Version None)
Quarter: 2011Q2

REPORT INFORMATION
  Report Type: 
  Country: None (occurrence: None)
  Receive Date: 20110609
  Receipt Date: 20110531
  Transmission Date: 20111010
  Serious: Yes (Hospitalization)
  Sender: FDA-Public Use
  Company Number: PHHO2010US10677

PATIENT
  Sex: Female

DRUGS (18)
  1. CELLCEPT [Suspect]
     Indication: RENAL TRANSPLANT
     Dosage: 3 G, DAILY
     Route: 048
     Dates: start: 20070120
  2. NEURONTIN [Concomitant]
  3. HYDROCODONE BITARTRATE [Concomitant]
  4. NITROGLYCERIN [Concomitant]
  5. PREDNISONE [Suspect]
     Indication: RENAL TRANSPLANT
     Dosage: 5 MG, QD
     Route: 048
     Dates: start: 20070326
  6. PAMELOR [Concomitant]
  7. PRAVASTATIN [Concomitant]
  8. XANAX [Concomitant]
  9. OXYCODONE HCL [Concomitant]
  10. PEPCID [Concomitant]
  11. CYCLOSPORINE [Suspect]
     Indication: RENAL TRANSPLANT
     Dosage: 300 MG, DAILY
     Route: 048
     Dates: start: 20070120
  12. CYCLOSPORINE [Suspect]
     Dosage: 275 MG, DAILY
     Route: 048
  13. METOPROLOL [Concomitant]
  14. OXYCONTIN [Concomitant]
  15. COLACE [Concomitant]
  16. LISINOPRIL [Concomitant]
  17. M.V.I. [Concomitant]
  18. NORTRIPTYLINE HCL [Concomitant]

REACTIONS (16)
  - CHEST DISCOMFORT [None]
  - ABDOMINAL PAIN [None]
  - MITRAL VALVE INCOMPETENCE [None]
  - HAEMATURIA [None]
  - SINUS TACHYCARDIA [None]
  - PERINEAL PAIN [None]
  - RIGHT VENTRICULAR SYSTOLIC PRESSURE INCREASED [None]
  - URINARY TRACT INFECTION BACTERIAL [None]
  - KIDNEY TRANSPLANT REJECTION [None]
  - LEFT VENTRICULAR HYPERTROPHY [None]
  - NAUSEA [None]
  - DYSPNOEA [None]
  - FATIGUE [None]
  - CHEST PAIN [None]
  - ELECTROCARDIOGRAM T WAVE ABNORMAL [None]
  - BETA HAEMOLYTIC STREPTOCOCCAL INFECTION [None]
